FAERS Safety Report 10309171 (Version 3)
Quarter: 2019Q3

REPORT INFORMATION
  Report Type: Report from Study
  Country: None (occurrence: CA)
  Receive Date: 20140716
  Receipt Date: 20190716
  Transmission Date: 20191004
  Serious: Yes (Other)
  Sender: FDA-Public Use
  Company Number: CA-ABBVIE-14P-028-1258003-00

PATIENT
  Sex: Male

DRUGS (1)
  1. HUMIRA [Suspect]
     Active Substance: ADALIMUMAB
     Indication: CROHN^S DISEASE
     Route: 058
     Dates: start: 20080510

REACTIONS (14)
  - Abdominal discomfort [Not Recovered/Not Resolved]
  - Hemiplegia [Unknown]
  - Limb discomfort [Recovered/Resolved]
  - Intervertebral disc protrusion [Unknown]
  - Rash papular [Unknown]
  - Pain [Unknown]
  - Rash papular [Unknown]
  - Anxiety [Not Recovered/Not Resolved]
  - Fistula [Not Recovered/Not Resolved]
  - Rash papular [Not Recovered/Not Resolved]
  - Arthralgia [Not Recovered/Not Resolved]
  - Facial paralysis [Unknown]
  - Feeling abnormal [Unknown]
  - Crohn^s disease [Unknown]

NARRATIVE: CASE EVENT DATE: 2011
